FAERS Safety Report 10489319 (Version 2)
Quarter: 2014Q4

REPORT INFORMATION
  Report Type: Spontaneous
  Country: IL (occurrence: None)
  Receive Date: 20140930
  Receipt Date: 20141229
  Transmission Date: 20150528
  Serious: Yes (Death)
  Sender: FDA-Public Use
  Company Number: 2014MPI00617

PATIENT
  Age: 86 Year
  Sex: Female

DRUGS (8)
  1. ZYLOL (ALLOPURINOL) [Concomitant]
  2. OMEPRADEX (OMEPRAZOLE) [Concomitant]
  3. CARDILOC (BISOPROLOL FUMARATE) [Concomitant]
  4. FUSID (FUROSEMIDE) [Concomitant]
     Active Substance: FUROSEMIDE
  5. CIPRALEX (EXCITALOPRAM OXALATE) [Concomitant]
  6. CLEXANE (ENOXAPARIN SODIUM) [Concomitant]
     Active Substance: ENOXAPARIN SODIUM
  7. PREDNISONE (PREDNISONE ACETATE) [Concomitant]
  8. ADCETRIS [Suspect]
     Active Substance: BRENTUXIMAB VEDOTIN
     Indication: HODGKIN^S DISEASE
     Route: 042
     Dates: start: 20140424, end: 20140515

REACTIONS (2)
  - Stomatitis [None]
  - Mastication disorder [None]

NARRATIVE: CASE EVENT DATE: 20140508
